FAERS Safety Report 10552514 (Version 3)
Quarter: 2014Q4

REPORT INFORMATION
  Report Type: Report from Study
  Country: US (occurrence: US)
  Receive Date: 20141029
  Receipt Date: 20141121
  Transmission Date: 20150529
  Serious: Yes (Life-Threatening, Hospitalization)
  Sender: FDA-Public Use
  Company Number: US-CELGENE-USA-2014102489

PATIENT
  Age: 14 Year
  Sex: Male
  Weight: 79 kg

DRUGS (95)
  1. ABRAXANE [Suspect]
     Active Substance: PACLITAXEL
     Route: 050
     Dates: start: 20140911
  2. ABRAXANE [Suspect]
     Active Substance: PACLITAXEL
     Route: 050
     Dates: start: 20140917
  3. MORPHINE SULFATE. [Concomitant]
     Active Substance: MORPHINE SULFATE
     Route: 065
     Dates: start: 20141009, end: 20141009
  4. METRONIDAZOLE. [Concomitant]
     Active Substance: METRONIDAZOLE
     Route: 065
     Dates: start: 20141020, end: 20141029
  5. LISINOPRIL. [Concomitant]
     Active Substance: LISINOPRIL
     Indication: CARDIAC FAILURE
     Dosage: 200 MILLIGRAM
     Route: 065
     Dates: start: 20140924, end: 20141007
  6. MIRTAZAPINE. [Concomitant]
     Active Substance: MIRTAZAPINE
     Indication: DEPRESSION
     Route: 065
     Dates: start: 20140730, end: 20141007
  7. MIRTAZAPINE. [Concomitant]
     Active Substance: MIRTAZAPINE
     Indication: NAUSEA
     Route: 065
     Dates: start: 20141014, end: 20141020
  8. NEXIUM [Concomitant]
     Active Substance: ESOMEPRAZOLE MAGNESIUM
     Route: 065
     Dates: start: 20141027, end: 20141103
  9. FENTANYL CITRATE. [Concomitant]
     Active Substance: FENTANYL CITRATE
     Route: 065
     Dates: start: 20141015, end: 20141016
  10. FUROSEMIDE. [Concomitant]
     Active Substance: FUROSEMIDE
     Route: 065
     Dates: start: 20141025, end: 20141025
  11. LIDOCAINE. [Concomitant]
     Active Substance: LIDOCAINE
     Dosage: 2 MILLIGRAM
     Route: 065
     Dates: start: 20141012, end: 20141013
  12. AMPICILLIN [Concomitant]
     Active Substance: AMPICILLIN
     Route: 065
     Dates: start: 20141022, end: 20141028
  13. MORPHINE SULFATE. [Concomitant]
     Active Substance: MORPHINE SULFATE
     Dosage: 2.5 MILLIGRAM
     Route: 065
     Dates: start: 20140822, end: 20141007
  14. OXYCODONE HYDROHLORIDE [Concomitant]
     Indication: PAIN
     Route: 065
     Dates: start: 20140730, end: 20140822
  15. DOCUSATE [Concomitant]
     Active Substance: DOCUSATE
     Route: 065
     Dates: start: 20141010, end: 20141013
  16. DEXTROSE MONOHYDRATE. [Concomitant]
     Active Substance: DEXTROSE MONOHYDRATE
     Indication: DEHYDRATION
     Route: 065
     Dates: start: 20140923, end: 20140925
  17. MICAFUNGIN [Concomitant]
     Active Substance: MICAFUNGIN
     Dosage: 12 MILLILITER
     Route: 065
     Dates: start: 20141007, end: 20141013
  18. ONDANSETRON [Concomitant]
     Active Substance: ONDANSETRON
     Indication: NAUSEA
     Route: 065
     Dates: start: 20140902, end: 20140906
  19. FUROSEMIDE. [Concomitant]
     Active Substance: FUROSEMIDE
     Dosage: 500 MILLIGRAM
     Route: 065
     Dates: start: 20141015, end: 20141016
  20. PIPERACILIN/TAZOBACTAM [Concomitant]
     Active Substance: PIPERACILLIN SODIUM\TAZOBACTAM SODIUM
     Route: 065
     Dates: start: 20141021, end: 20141021
  21. HALOPERIDOL. [Concomitant]
     Active Substance: HALOPERIDOL
     Indication: AGITATION
     Route: 065
     Dates: start: 20141022, end: 20141103
  22. VANCOMYCIN [Concomitant]
     Active Substance: VANCOMYCIN
     Route: 065
     Dates: start: 20141025, end: 20141025
  23. POLYVINYL ALCOHOL [Concomitant]
     Active Substance: POLYVINYL ALCOHOL
     Indication: DRY EYE
     Dosage: 2 DROPS
     Route: 065
     Dates: start: 20141024, end: 20141103
  24. DIPHENHYDRAMINE [Concomitant]
     Active Substance: DIPHENHYDRAMINE
     Indication: NAUSEA
     Route: 065
     Dates: start: 20141022, end: 20141023
  25. DIPHENHYDRAMINE [Concomitant]
     Active Substance: DIPHENHYDRAMINE
     Route: 065
     Dates: start: 20141028, end: 20141103
  26. ABRAXANE [Suspect]
     Active Substance: PACLITAXEL
     Indication: ABDOMINAL NEOPLASM
     Dosage: DAY 1,8,15
     Route: 050
     Dates: start: 20140902
  27. METRONIDAZOLE. [Concomitant]
     Active Substance: METRONIDAZOLE
     Route: 065
     Dates: start: 20141007, end: 20141010
  28. FLUCONAZOLE. [Concomitant]
     Active Substance: FLUCONAZOLE
     Indication: CANDIDA INFECTION
     Route: 065
     Dates: start: 20140819, end: 20140928
  29. FLUCONAZOLE. [Concomitant]
     Active Substance: FLUCONAZOLE
     Route: 065
     Dates: start: 20140828, end: 20140830
  30. FLUCONAZOLE. [Concomitant]
     Active Substance: FLUCONAZOLE
     Route: 065
     Dates: start: 20141021, end: 20141029
  31. SIMETHICONE [Concomitant]
     Active Substance: DIMETHICONE\SILICON DIOXIDE\SIMETHICONE
     Indication: ABDOMINAL PAIN
     Route: 065
     Dates: start: 20140822, end: 20140826
  32. ONDANSETRON [Concomitant]
     Active Substance: ONDANSETRON
     Route: 065
     Dates: start: 20141027, end: 20141103
  33. PIPERACILIN/TAZOBACTAM [Concomitant]
     Active Substance: PIPERACILLIN SODIUM\TAZOBACTAM SODIUM
     Route: 065
     Dates: start: 20141021, end: 20141022
  34. CHLORPROMAZINE [Concomitant]
     Active Substance: CHLORPROMAZINE
     Indication: NAUSEA
     Route: 065
     Dates: start: 20141023, end: 20141029
  35. GRANISETRON [Concomitant]
     Active Substance: GRANISETRON
     Indication: NAUSEA
     Route: 065
     Dates: start: 20141020, end: 20141103
  36. MINERAL OIL. [Concomitant]
     Active Substance: MINERAL OIL
     Indication: DRY SKIN
     Route: 065
     Dates: start: 20141021, end: 20141103
  37. DOCUSATE [Concomitant]
     Active Substance: DOCUSATE
     Indication: CONSTIPATION
     Dosage: AS NEEDED
     Route: 065
     Dates: start: 20140902, end: 20140906
  38. NEXIUM [Concomitant]
     Active Substance: ESOMEPRAZOLE MAGNESIUM
     Indication: FLATULENCE
     Route: 065
     Dates: start: 20141021, end: 20141027
  39. FENTANYL CITRATE. [Concomitant]
     Active Substance: FENTANYL CITRATE
     Route: 065
     Dates: start: 20141016, end: 20141020
  40. HYDROCORTISONE SUCCINATE [Concomitant]
     Indication: OEDEMA
     Dosage: 17 GRAM
     Route: 065
     Dates: start: 20141011, end: 20141012
  41. HYDROCORTISONE SUCCINATE [Concomitant]
     Route: 065
     Dates: start: 20141013, end: 20141103
  42. PENICILLIN VK [Concomitant]
     Active Substance: PENICILLIN V POTASSIUM
     Indication: SPLENECTOMY
     Route: 065
     Dates: start: 20141014, end: 20141016
  43. PIPERACILIN/TAZOBACTAM [Concomitant]
     Active Substance: PIPERACILLIN SODIUM\TAZOBACTAM SODIUM
     Route: 065
     Dates: start: 20141008, end: 20141014
  44. METOCLOPRAMIDE. [Concomitant]
     Active Substance: METOCLOPRAMIDE
     Indication: NAUSEA
     Route: 065
     Dates: start: 20141007, end: 20141007
  45. KETOROLAC [Concomitant]
     Active Substance: KETOROLAC\KETOROLAC TROMETHAMINE
     Indication: OEDEMA
     Route: 065
     Dates: start: 20141021, end: 20141023
  46. ACETAMINOPHEN. [Concomitant]
     Active Substance: ACETAMINOPHEN
     Route: 065
     Dates: start: 20141021, end: 20141021
  47. ALBUMIN HUMAN [Concomitant]
     Active Substance: ALBUMIN (HUMAN)
     Route: 065
     Dates: start: 20141024, end: 20141024
  48. ABRAXANE [Suspect]
     Active Substance: PACLITAXEL
     Route: 050
     Dates: start: 20141002
  49. ZOLPIDEM [Concomitant]
     Active Substance: ZOLPIDEM\ZOLPIDEM TARTRATE
     Indication: INSOMNIA
     Route: 065
     Dates: start: 2014, end: 20141016
  50. ZOLPIDEM [Concomitant]
     Active Substance: ZOLPIDEM\ZOLPIDEM TARTRATE
     Route: 065
     Dates: start: 20141016, end: 20141020
  51. SULFAMETHOXAZOLE/TRIMETHOPRIM DS [Concomitant]
     Active Substance: SULFAMETHOXAZOLE\TRIMETHOPRIM
     Indication: PROPHYLAXIS
     Dosage: 800/160MG
     Route: 065
     Dates: start: 20140730, end: 20141007
  52. METRONIDAZOLE. [Concomitant]
     Active Substance: METRONIDAZOLE
     Route: 065
     Dates: start: 20141013, end: 20141016
  53. MICAFUNGIN [Concomitant]
     Active Substance: MICAFUNGIN
     Indication: URINARY TRACT INFECTION
     Dosage: 2400 MILLILITER
     Route: 065
     Dates: start: 20140902, end: 20140916
  54. NEXIUM [Concomitant]
     Active Substance: ESOMEPRAZOLE MAGNESIUM
     Indication: ABDOMINAL PAIN
     Route: 065
     Dates: start: 20141007, end: 20141016
  55. FENTANYL CITRATE. [Concomitant]
     Active Substance: FENTANYL CITRATE
     Indication: PAIN
     Route: 065
     Dates: start: 20141008, end: 20141008
  56. FENTANYL CITRATE. [Concomitant]
     Active Substance: FENTANYL CITRATE
     Dosage: 1-1.26MCG/KG
     Route: 065
     Dates: start: 20141020, end: 20141101
  57. FUROSEMIDE. [Concomitant]
     Active Substance: FUROSEMIDE
     Route: 065
     Dates: start: 20141008, end: 20141008
  58. AMPICILLIN [Concomitant]
     Active Substance: AMPICILLIN
     Indication: URINARY TRACT INFECTION
     Route: 065
     Dates: start: 20141020, end: 20141021
  59. FAMOTIDINE. [Concomitant]
     Active Substance: FAMOTIDINE
     Indication: DYSPEPSIA
     Route: 065
     Dates: start: 20140821, end: 20140924
  60. OXYCODONE HYDROHLORIDE [Concomitant]
     Route: 065
     Dates: start: 20141016, end: 20141020
  61. PENICILLIN V POTASSIUM. [Concomitant]
     Active Substance: PENICILLIN V POTASSIUM
     Route: 065
     Dates: start: 20141016, end: 20141020
  62. METRONIDAZOLE. [Concomitant]
     Active Substance: METRONIDAZOLE
     Indication: CLOSTRIDIUM DIFFICILE INFECTION
     Route: 041
     Dates: start: 20140924, end: 20141007
  63. ONDANSETRON [Concomitant]
     Active Substance: ONDANSETRON
     Route: 065
     Dates: start: 20140923
  64. ONDANSETRON [Concomitant]
     Active Substance: ONDANSETRON
     Route: 065
     Dates: start: 20141007, end: 20141008
  65. ONDANSETRON [Concomitant]
     Active Substance: ONDANSETRON
     Route: 065
     Dates: start: 20141015, end: 20141020
  66. LIDOCAINE. [Concomitant]
     Active Substance: LIDOCAINE
     Indication: PAIN
     Dosage: 5%
     Route: 065
     Dates: start: 20141016, end: 20141016
  67. LIDOCAINE. [Concomitant]
     Active Substance: LIDOCAINE
     Dosage: 5%
     Route: 065
     Dates: start: 20141023, end: 20141103
  68. PIPERACILIN/TAZOBACTAM [Concomitant]
     Active Substance: PIPERACILLIN SODIUM\TAZOBACTAM SODIUM
     Route: 065
     Dates: start: 20141024, end: 20141026
  69. ACETAMINOPHEN. [Concomitant]
     Active Substance: ACETAMINOPHEN
     Indication: PAIN
     Route: 065
     Dates: start: 20141022, end: 20141103
  70. MORPHINE SULFATE. [Concomitant]
     Active Substance: MORPHINE SULFATE
     Indication: PAIN
     Route: 065
     Dates: start: 20140730, end: 20140822
  71. OXYCODONE HYDROHLORIDE [Concomitant]
     Route: 065
     Dates: start: 20140822, end: 20141007
  72. SULFAMETHOXAZOLE/TRIMETHOPRIM DS [Concomitant]
     Active Substance: SULFAMETHOXAZOLE\TRIMETHOPRIM
     Dosage: 800/160MG
     Route: 065
     Dates: start: 20141027, end: 20141103
  73. FLUCONAZOLE. [Concomitant]
     Active Substance: FLUCONAZOLE
     Route: 065
     Dates: start: 20141030, end: 20141103
  74. BACLOFEN. [Concomitant]
     Active Substance: BACLOFEN
     Indication: MYALGIA
     Route: 065
     Dates: end: 20141007
  75. FUROSEMIDE. [Concomitant]
     Active Substance: FUROSEMIDE
     Indication: OEDEMA
     Route: 065
     Dates: start: 20141015, end: 20141015
  76. HYDROMORPHONE [Concomitant]
     Active Substance: HYDROMORPHONE
     Route: 065
     Dates: start: 20141012, end: 20141013
  77. HYDROMORPHONE [Concomitant]
     Active Substance: HYDROMORPHONE
     Dosage: 100 MILLIGRAM
     Route: 065
     Dates: start: 20141013, end: 20141014
  78. PIPERACILIN/TAZOBACTAM [Concomitant]
     Active Substance: PIPERACILLIN SODIUM\TAZOBACTAM SODIUM
     Route: 065
     Dates: start: 20141026, end: 20141027
  79. VANCOMYCIN [Concomitant]
     Active Substance: VANCOMYCIN
     Route: 041
     Dates: start: 20141011, end: 20141016
  80. VANCOMYCIN [Concomitant]
     Active Substance: VANCOMYCIN
     Route: 065
     Dates: start: 20141024, end: 20141024
  81. SODIUM BICARBONATE. [Concomitant]
     Active Substance: SODIUM BICARBONATE
     Indication: ACIDOSIS
     Route: 065
     Dates: start: 20141026, end: 20141026
  82. PENICILLIN V POTASSIUM. [Concomitant]
     Active Substance: PENICILLIN V POTASSIUM
     Indication: PROPHYLAXIS
     Dosage: 40 MILLIGRAM
     Route: 065
     Dates: start: 201311, end: 20141007
  83. SULFAMETHOXAZOLE/TRIMETHOPRIM DS [Concomitant]
     Active Substance: SULFAMETHOXAZOLE\TRIMETHOPRIM
     Dosage: 800/160MG
     Route: 065
     Dates: start: 20141024, end: 20141026
  84. BACLOFEN. [Concomitant]
     Active Substance: BACLOFEN
     Indication: MUSCLE SPASMS
  85. ATIVAN [Concomitant]
     Active Substance: LORAZEPAM
     Indication: DEPRESSION
     Dosage: 1-4MG
     Route: 065
     Dates: start: 20140808, end: 20141016
  86. ATIVAN [Concomitant]
     Active Substance: LORAZEPAM
     Indication: NAUSEA
     Dosage: 2-0.5MG
     Route: 065
     Dates: start: 20141020, end: 20141103
  87. FENTANYL CITRATE. [Concomitant]
     Active Substance: FENTANYL CITRATE
     Route: 065
     Dates: start: 20141008, end: 20141008
  88. HYDROCORTISONE SUCCINATE [Concomitant]
     Route: 065
     Dates: start: 20141012, end: 20141013
  89. HYDROMORPHONE [Concomitant]
     Active Substance: HYDROMORPHONE
     Indication: PAIN
     Dosage: 525 MILLIGRAM
     Route: 065
     Dates: start: 20141009, end: 20141009
  90. LIDOCAINE. [Concomitant]
     Active Substance: LIDOCAINE
     Dosage: 120 MILLIGRAM
     Route: 065
     Dates: start: 20141013, end: 20141014
  91. OXYCODONE [Concomitant]
     Active Substance: OXYCODONE
     Indication: PAIN
     Route: 065
     Dates: start: 20141014, end: 20141016
  92. PIPERACILIN/TAZOBACTAM [Concomitant]
     Active Substance: PIPERACILLIN SODIUM\TAZOBACTAM SODIUM
     Indication: HYPOTENSION
     Route: 065
     Dates: start: 20141007, end: 20141008
  93. TOBRAMYCIN. [Concomitant]
     Active Substance: TOBRAMYCIN
     Indication: HYPERTENSION
     Route: 065
     Dates: start: 20141007, end: 20141009
  94. METOCLOPRAMIDE. [Concomitant]
     Active Substance: METOCLOPRAMIDE
     Route: 065
     Dates: start: 20141020, end: 20141030
  95. VANCOMYCIN [Concomitant]
     Active Substance: VANCOMYCIN
     Indication: HYPOTENSION
     Route: 041
     Dates: start: 20141007, end: 20141011

REACTIONS (5)
  - Dehydration [Recovered/Resolved]
  - Acute kidney injury [Recovered/Resolved]
  - Hyponatraemia [Recovered/Resolved]
  - Hypotension [Recovered/Resolved]
  - Blood creatinine increased [Recovered/Resolved]

NARRATIVE: CASE EVENT DATE: 20141007
